FAERS Safety Report 5732672-3 (Version None)
Quarter: 2008Q2

REPORT INFORMATION
  Report Type: 
  Country: None (occurrence: None)
  Receive Date: 20080509
  Receipt Date: 20080425
  Transmission Date: 20081010
  Serious: Yes (Other)
  Sender: FDA-Public Use
  Company Number: US-BAYER-200812194NA

PATIENT
  Sex: Female

DRUGS (1)
  1. MIRENA [Suspect]
     Indication: CONTRACEPTION
     Route: 015
     Dates: start: 20071107, end: 20080114

REACTIONS (2)
  - CERVICAL DYSPLASIA [None]
  - INTRA-UTERINE CONTRACEPTIVE DEVICE EXPELLED [None]
